FAERS Safety Report 9006296 (Version 1)
Quarter: 2012Q4

REPORT INFORMATION
  Report Type: Spontaneous
  Country: US (occurrence: None)
  Receive Date: 20121226
  Receipt Date: 20121226
  Transmission Date: 20130627
  Serious: Yes (Other)
  Sender: FDA-Public Use
  Company Number: 2012P1067384

PATIENT
  Age: 50 Year
  Sex: Female

DRUGS (1)
  1. INFUMORPH [Suspect]
     Indication: PAIN
     Dates: start: 201211

REACTIONS (5)
  - Headache [None]
  - Device leakage [None]
  - Cerebrospinal fluid leakage [None]
  - Incision site complication [None]
  - Swelling [None]
